FAERS Safety Report 5491231-0 (Version None)
Quarter: 2007Q4

REPORT INFORMATION
  Report Type: 
  Country: None (occurrence: None)
  Receive Date: 20071017
  Receipt Date: 20071005
  Transmission Date: 20080405
  Serious: Yes (Death, Life-Threatening, Hospitalization, Other)
  Sender: FDA-Public Use
  Company Number: 2007S1000337

PATIENT
  Age: 51 Year
  Sex: Female

DRUGS (2)
  1. CUBICIN [Suspect]
     Indication: STAPHYLOCOCCAL BACTERAEMIA
     Dosage: 6 MG/KG; Q24H; IV
     Route: 042
     Dates: start: 20070101, end: 20070201
  2. VANCOMYCIN [Concomitant]

REACTIONS (9)
  - ASCITES [None]
  - CARDIAC VALVE VEGETATION [None]
  - DELIRIUM [None]
  - GENERAL PHYSICAL HEALTH DETERIORATION [None]
  - MITRAL VALVE INCOMPETENCE [None]
  - MULTI-ORGAN FAILURE [None]
  - PLEURAL EFFUSION [None]
  - STAPHYLOCOCCAL INFECTION [None]
  - TREATMENT FAILURE [None]
